FAERS Safety Report 7090770-9 (Version None)
Quarter: 2010Q4

REPORT INFORMATION
  Report Type: 
  Country: None (occurrence: None)
  Receive Date: 20101012
  Receipt Date: 20100809
  Transmission Date: 20110411
  Serious: No
  Sender: FDA-Public Use
  Company Number: US_001253

PATIENT
  Sex: Male
  Weight: 63.5036 kg

DRUGS (4)
  1. KUVAN [Suspect]
     Indication: PHENYLKETONURIA
     Dosage: 1000 MG QD, ORAL; 1000 MG QD, ORAL; 1000 MG QD, ORAL
     Route: 048
     Dates: start: 20080819
  2. KUVAN [Suspect]
     Indication: PHENYLKETONURIA
     Dosage: 1000 MG QD, ORAL; 1000 MG QD, ORAL; 1000 MG QD, ORAL
     Route: 048
     Dates: start: 20090809
  3. VYVANSE [Concomitant]
  4. TYLENOL PM, EXTRA STRENGTH [Concomitant]

REACTIONS (6)
  - ABDOMINAL PAIN UPPER [None]
  - DIET REFUSAL [None]
  - DIZZINESS [None]
  - ERYTHEMA [None]
  - HEADACHE [None]
  - PRURITUS GENERALISED [None]
